FAERS Safety Report 23650801 (Version 2)
Quarter: 2024Q1

REPORT INFORMATION
  Report Type: Spontaneous
  Country: GB (occurrence: GB)
  Receive Date: 20240320
  Receipt Date: 20240329
  Transmission Date: 20240410
  Serious: Yes (Other)
  Sender: FDA-Public Use
  Company Number: GB-NOVOPROD-1190382

PATIENT
  Age: 77 Year
  Sex: Male

DRUGS (1)
  1. RYBELSUS [Suspect]
     Active Substance: SEMAGLUTIDE
     Indication: Type 2 diabetes mellitus
     Dosage: 3 MG
     Dates: start: 20240227, end: 20240309

REACTIONS (5)
  - Hypertension [Unknown]
  - Myalgia [Unknown]
  - Confusional state [Unknown]
  - Poor quality sleep [Unknown]
  - Drug intolerance [Unknown]
